FAERS Safety Report 6172869-4 (Version None)
Quarter: 2009Q2

REPORT INFORMATION
  Report Type: 
  Country: None (occurrence: None)
  Receive Date: 20090430
  Receipt Date: 20090421
  Transmission Date: 20091009
  Serious: Yes (Other)
  Sender: FDA-Public Use
  Company Number: GR-ROCHE-624620

PATIENT
  Sex: Female
  Weight: 67 kg

DRUGS (2)
  1. BONIVA [Suspect]
     Indication: OSTEOPOROSIS
     Route: 048
     Dates: start: 20090108, end: 20090108
  2. CIPRALEX [Concomitant]
     Indication: DEPRESSION
     Route: 048
     Dates: start: 20050101

REACTIONS (4)
  - ANGIOEDEMA [None]
  - APHTHOUS STOMATITIS [None]
  - ASTHENIA [None]
  - LYMPHADENOPATHY [None]
